FAERS Safety Report 14561398 (Version 1)
Quarter: 2018Q1

REPORT INFORMATION
  Report Type: Spontaneous
  Country: US (occurrence: US)
  Receive Date: 20180222
  Receipt Date: 20180222
  Transmission Date: 20180509
  Serious: No
  Sender: FDA-Public Use
  Company Number: US-PFIZER INC-2018074789

PATIENT
  Sex: Female

DRUGS (1)
  1. LYRICA [Suspect]
     Active Substance: PREGABALIN
     Dosage: UNK

REACTIONS (6)
  - Fall [Unknown]
  - Gait disturbance [Unknown]
  - Arthralgia [Unknown]
  - Spinal pain [Unknown]
  - Concussion [Unknown]
  - Musculoskeletal pain [Unknown]
